FAERS Safety Report 4844065-1 (Version None)
Quarter: 2005Q4

REPORT INFORMATION
  Report Type: 
  Country: None (occurrence: None)
  Receive Date: 20051202
  Receipt Date: 20051123
  Transmission Date: 20060501
  Serious: Yes (Life-Threatening)
  Sender: FDA-Public Use
  Company Number: AU-ROCHE-425985

PATIENT

DRUGS (4)
  1. XELODA [Suspect]
     Indication: DRUG USE FOR UNKNOWN INDICATION
     Route: 048
     Dates: start: 20030414, end: 20030623
  2. GLYCERYL TRINITRATE [Concomitant]
     Dosage: FORM: SPRAY.
  3. ASPIRIN [Concomitant]
     Route: 048
  4. THYROXINE SODIUM [Concomitant]
     Route: 048

REACTIONS (3)
  - ARTERIOSPASM CORONARY [None]
  - COLITIS ISCHAEMIC [None]
  - LARGE INTESTINE PERFORATION [None]
